FAERS Safety Report 5875623-3 (Version None)
Quarter: 2008Q3

REPORT INFORMATION
  Report Type: 
  Country: None (occurrence: None)
  Receive Date: 20080909
  Receipt Date: 20080828
  Transmission Date: 20090109
  Serious: Yes (Hospitalization, Other)
  Sender: FDA-Public Use
  Company Number: US-ELI_LILLY_AND_COMPANY-US200806001581

PATIENT
  Age: 57 Year
  Sex: Male

DRUGS (9)
  1. BYETTA [Suspect]
     Indication: TYPE 1 DIABETES MELLITUS
     Dosage: UNK, UNK
     Route: 058
     Dates: end: 20080524
  2. BYETTA [Suspect]
     Dosage: 5 UG, 2/D
     Route: 058
  3. APIDRA [Concomitant]
     Dosage: UNK, UNKNOWN
  4. ULTRAM [Concomitant]
     Dosage: UNK, UNKNOWN
  5. DILANTIN [Concomitant]
     Dosage: UNK, UNKNOWN
  6. ZOCOR [Concomitant]
     Dosage: UNK, UNKNOWN
  7. LORTAB [Concomitant]
     Dosage: UNK, AS NEEDED
  8. DARVOCET /00220901/ [Concomitant]
     Dosage: UNK, AS NEEDED
  9. LANTUS [Concomitant]
     Dosage: UNK, UNKNOWN

REACTIONS (9)
  - ACCIDENTAL OVERDOSE [None]
  - DEHYDRATION [None]
  - HEADACHE [None]
  - HYPOCALCAEMIA [None]
  - MALAISE [None]
  - MEDICATION ERROR [None]
  - NAUSEA [None]
  - TACHYCARDIA [None]
  - VOMITING [None]
